FAERS Safety Report 15997718 (Version 1)
Quarter: 2019Q1

REPORT INFORMATION
  Report Type: Spontaneous
  Country: BE (occurrence: BE)
  Receive Date: 20190222
  Receipt Date: 20190222
  Transmission Date: 20190418
  Serious: No
  Sender: FDA-Public Use
  Company Number: BE-ELI_LILLY_AND_COMPANY-BE201902008485

PATIENT
  Age: 56 Year
  Sex: Female

DRUGS (9)
  1. PANTOMED [PANTOPRAZOLE SODIUM SESQUIHYDRATE] [Concomitant]
     Indication: PRODUCT USED FOR UNKNOWN INDICATION
  2. ACICLOVIR [Concomitant]
     Active Substance: ACYCLOVIR
     Dosage: 0.5 DF, EACH EVENING
  3. PROBIOMAX [Concomitant]
     Indication: NUTRITIONAL SUPPLEMENTATION
  4. HUMIRA [Concomitant]
     Active Substance: ADALIMUMAB
     Indication: PRODUCT USED FOR UNKNOWN INDICATION
  5. L THYROXIN [Concomitant]
     Active Substance: LEVOTHYROXINE SODIUM
     Indication: PRODUCT USED FOR UNKNOWN INDICATION
  6. METFORMAX [Concomitant]
     Active Substance: METFORMIN HYDROCHLORIDE
     Indication: PRODUCT USED FOR UNKNOWN INDICATION
     Dosage: 0.5 DF, UNK
  7. ZYPREXA [Suspect]
     Active Substance: OLANZAPINE
     Indication: PRODUCT USED FOR UNKNOWN INDICATION
     Dosage: UNK, UNKNOWN
     Route: 065
     Dates: start: 20190214
  8. LOSARTAN. [Concomitant]
     Active Substance: LOSARTAN
     Indication: PRODUCT USED FOR UNKNOWN INDICATION
  9. ACICLOVIR [Concomitant]
     Active Substance: ACYCLOVIR
     Indication: PRODUCT USED FOR UNKNOWN INDICATION
     Dosage: 0.5 DF, EACH MORNING

REACTIONS (6)
  - Nightmare [Unknown]
  - Somnambulism [Unknown]
  - Dizziness postural [Unknown]
  - Nasal dryness [Unknown]
  - Epistaxis [Unknown]
  - Dysstasia [Unknown]
